FAERS Safety Report 22090927 (Version 1)
Quarter: 2023Q1

REPORT INFORMATION
  Report Type: Spontaneous
  Country: AT (occurrence: AT)
  Receive Date: 20230314
  Receipt Date: 20230314
  Transmission Date: 20230417
  Serious: Yes (Other)
  Sender: FDA-Public Use
  Company Number: AT-BAYER-2023A023371

PATIENT
  Sex: Male

DRUGS (2)
  1. ATEZOLIZUMAB [Suspect]
     Active Substance: ATEZOLIZUMAB
     Indication: Transitional cell carcinoma
     Dosage: UNK
     Route: 065
  2. ROGARATINIB [Suspect]
     Active Substance: ROGARATINIB
     Indication: Product used for unknown indication
     Dosage: UNK
     Route: 065

REACTIONS (9)
  - Hyperthyroidism [Unknown]
  - Rhinorrhoea [Unknown]
  - Bronchitis [Unknown]
  - Foot operation [Unknown]
  - Cataract [Unknown]
  - Insomnia [Unknown]
  - Pancreatitis [Unknown]
  - Dyspnoea [Unknown]
  - Nail disorder [Unknown]
